FAERS Safety Report 6812592-3 (Version None)
Quarter: 2010Q3

REPORT INFORMATION
  Report Type: 
  Country: None (occurrence: None)
  Receive Date: 20100701
  Receipt Date: 20100621
  Transmission Date: 20110219
  Serious: Yes (Death, Other)
  Sender: FDA-Public Use
  Company Number: BR-PFIZER INC-2010076893

PATIENT
  Age: 84 Year
  Sex: Female

DRUGS (1)
  1. DIABINESE [Suspect]
     Indication: DIABETES MELLITUS
     Dosage: UNK
     Route: 048

REACTIONS (2)
  - PNEUMONIA [None]
  - SENILE DEMENTIA [None]
